FAERS Safety Report 6336529-9 (Version None)
Quarter: 2009Q3

REPORT INFORMATION
  Report Type: 
  Country: None (occurrence: None)
  Receive Date: 20090831
  Receipt Date: 20090831
  Transmission Date: 20100115
  Serious: Yes (Hospitalization)
  Sender: FDA-Public Use
  Company Number: None

PATIENT
  Age: 53 Year
  Sex: Male

DRUGS (2)
  1. WARFARIN SODIUM [Suspect]
     Indication: CEREBELLAR EMBOLISM
     Dosage: 5MG EVERY DAY PO
     Route: 048
     Dates: start: 20090320
  2. WARFARIN SODIUM [Suspect]
     Indication: CEREBROVASCULAR ACCIDENT
     Dosage: 5MG EVERY DAY PO
     Route: 048
     Dates: start: 20090320

REACTIONS (3)
  - GASTRIC HAEMORRHAGE [None]
  - INTERNATIONAL NORMALISED RATIO ABNORMAL [None]
  - THERAPEUTIC AGENT TOXICITY [None]
